FAERS Safety Report 12958648 (Version 1)
Quarter: 2016Q4

REPORT INFORMATION
  Report Type: Spontaneous
  Country: US (occurrence: US)
  Receive Date: 20161121
  Receipt Date: 20161121
  Transmission Date: 20170207
  Serious: Yes (Other)
  Sender: FDA-Public Use
  Company Number: US-MACLEODS PHARMACEUTICALS US LTD-MAC2016003404

PATIENT

DRUGS (1)
  1. DONEPEZIL. [Suspect]
     Active Substance: DONEPEZIL
     Indication: APHASIA
     Dosage: UNK
     Route: 065

REACTIONS (4)
  - Rebound effect [Recovered/Resolved]
  - Cognitive disorder [Recovered/Resolved]
  - Language disorder [Recovered/Resolved]
  - Aphasia [Recovered/Resolved]
